FAERS Safety Report 14754012 (Version 1)
Quarter: 2018Q2

REPORT INFORMATION
  Report Type: Report from Study
  Country: US (occurrence: US)
  Receive Date: 20180412
  Receipt Date: 20180412
  Transmission Date: 20180711
  Serious: Yes (Hospitalization)
  Sender: FDA-Public Use
  Company Number: US-ACTELION-A-US2016-145007

PATIENT
  Age: 81 Year
  Sex: Female
  Weight: 64.85 kg

DRUGS (2)
  1. ADCIRCA [Concomitant]
     Active Substance: TADALAFIL
  2. OPSUMIT [Suspect]
     Active Substance: MACITENTAN
     Indication: PULMONARY HYPERTENSION
     Dosage: 10 MG, QD
     Route: 048
     Dates: start: 20150706

REACTIONS (8)
  - Dyspnoea [Unknown]
  - Pulmonary arterial hypertension [Unknown]
  - Pleural effusion [Unknown]
  - Fluid retention [Unknown]
  - Nasal congestion [Unknown]
  - Peripheral swelling [Unknown]
  - Fatigue [Unknown]
  - Pneumonia [Unknown]
